FAERS Safety Report 7681671-3 (Version None)
Quarter: 2011Q3

REPORT INFORMATION
  Report Type: 
  Country: None (occurrence: None)
  Receive Date: 20110812
  Receipt Date: 20110809
  Transmission Date: 20111222
  Serious: Yes (Death, Hospitalization)
  Sender: FDA-Public Use
  Company Number: US-B.I. PHARMACEUTICALS,INC./RIDGEFIELD-2011-BP-17122BP

PATIENT
  Age: 88 Year
  Sex: Female
  Weight: 55.5 kg

DRUGS (6)
  1. ACTONEL [Concomitant]
     Dosage: 150 MG
  2. LANTUS [Concomitant]
     Dosage: 10 U
  3. LISINOPRIL [Concomitant]
     Dosage: 20 MG
  4. AVAPRO [Concomitant]
     Dosage: 300 MG
  5. PRADAXA [Suspect]
     Dates: start: 20110221, end: 20110522
  6. CRESTOR [Concomitant]
     Dosage: 20 MG

REACTIONS (7)
  - ATRIAL FIBRILLATION [None]
  - RECTAL HAEMORRHAGE [None]
  - CARDIAC FAILURE CONGESTIVE [None]
  - PNEUMONIA ASPIRATION [None]
  - BRAIN STEM STROKE [None]
  - GASTROINTESTINAL HAEMORRHAGE [None]
  - MYOCARDIAL INFARCTION [None]
